FAERS Safety Report 11216137 (Version 1)
Quarter: 2015Q2

REPORT INFORMATION
  Report Type: Spontaneous
  Country: US (occurrence: US)
  Receive Date: 20150624
  Receipt Date: 20150624
  Transmission Date: 20150821
  Serious: No
  Sender: FDA-Public Use
  Company Number: US-PFIZER INC-2015045529

PATIENT
  Age: 49 Year
  Sex: Female
  Weight: 70 kg

DRUGS (3)
  1. LYRICA [Suspect]
     Active Substance: PREGABALIN
     Indication: SPINAL COLUMN STENOSIS
     Dosage: 200 MG, 2X/DAY
  2. LYRICA [Suspect]
     Active Substance: PREGABALIN
     Indication: FIBROMYALGIA
     Dosage: UNK
  3. LYRICA [Suspect]
     Active Substance: PREGABALIN
     Indication: RHEUMATOID ARTHRITIS
     Dosage: 100 MG, UNK

REACTIONS (11)
  - Discomfort [Unknown]
  - Fluid retention [Unknown]
  - Intentional product misuse [Unknown]
  - Pain [Unknown]
  - Blood glucose abnormal [Unknown]
  - Blister [Unknown]
  - Scar [Unknown]
  - Fatigue [Unknown]
  - Product use issue [Unknown]
  - Anxiety [Unknown]
  - Sacroiliitis [Unknown]
